FAERS Safety Report 9641680 (Version 1)
Quarter: 2013Q4

REPORT INFORMATION
  Report Type: Spontaneous
  Country: BR (occurrence: BR)
  Receive Date: 20131023
  Receipt Date: 20131023
  Transmission Date: 20140711
  Serious: Yes (Other)
  Sender: FDA-Public Use
  Company Number: BR-GLAXOSMITHKLINE-A1046207A

PATIENT
  Age: 49 Year
  Sex: Male
  Weight: 72 kg

DRUGS (1)
  1. NIQUITIN CQ 4MG LOZENGE [Suspect]
     Indication: SMOKING CESSATION THERAPY
     Dosage: 4MG SINGLE DOSE
     Route: 065
     Dates: start: 20131007, end: 20131007

REACTIONS (9)
  - Cardio-respiratory arrest [Recovered/Resolved]
  - Laryngospasm [Unknown]
  - Throat tightness [Unknown]
  - Heart rate irregular [Unknown]
  - Chills [Unknown]
  - Hyperhidrosis [Unknown]
  - Heart rate increased [Unknown]
  - Dizziness [Unknown]
  - Dyspnoea [Unknown]
